FAERS Safety Report 14828957 (Version 1)
Quarter: 2018Q2

REPORT INFORMATION
  Report Type: Spontaneous
  Country: US (occurrence: US)
  Receive Date: 20180418
  Receipt Date: 20180418
  Transmission Date: 20180711
  Serious: Yes (Hospitalization)
  Sender: FDA-Public Use
  Company Number: None

PATIENT
  Age: 62 Year
  Sex: Male

DRUGS (8)
  1. INDOMETHACIN. [Concomitant]
     Active Substance: INDOMETHACIN
  2. PROTONIX [Concomitant]
     Active Substance: PANTOPRAZOLE SODIUM
  3. ALLOPURINOL. [Concomitant]
     Active Substance: ALLOPURINOL
  4. LOPERAMIDE [Concomitant]
     Active Substance: LOPERAMIDE
  5. LONSURF [Suspect]
     Active Substance: TIPIRACIL HYDROCHLORIDE\TRIFLURIDINE
     Indication: COLON CANCER
     Route: 048
     Dates: start: 20180327
  6. SIMVASTATIN. [Concomitant]
     Active Substance: SIMVASTATIN
  7. MTOPROLOL [Concomitant]
  8. LONSURF [Suspect]
     Active Substance: TIPIRACIL HYDROCHLORIDE\TRIFLURIDINE
     Indication: COLON CANCER
     Route: 048
     Dates: start: 20180327

REACTIONS (4)
  - White blood cell count decreased [None]
  - Haemoglobin decreased [None]
  - Product quality issue [None]
  - Pyrexia [None]
